FAERS Safety Report 13891631 (Version 1)
Quarter: 2017Q3

REPORT INFORMATION
  Report Type: Spontaneous
  Country: BR (occurrence: BR)
  Receive Date: 20170822
  Receipt Date: 20170822
  Transmission Date: 20171127
  Serious: Yes (Other)
  Sender: FDA-Public Use
  Company Number: BR-AMGEN-BRASP2017127701

PATIENT
  Age: 43 Year
  Sex: Male

DRUGS (1)
  1. ENBREL [Suspect]
     Active Substance: ETANERCEPT
     Indication: PRODUCT USED FOR UNKNOWN INDICATION
     Dosage: UNK
     Route: 065
     Dates: start: 201707

REACTIONS (4)
  - Pruritus [Unknown]
  - Haemorrhage [Recovered/Resolved]
  - Skin discolouration [Unknown]
  - Libido decreased [Unknown]

NARRATIVE: CASE EVENT DATE: 2017
